FAERS Safety Report 25203317 (Version 1)
Quarter: 2025Q2

REPORT INFORMATION
  Report Type: Spontaneous
  Country: RU (occurrence: RU)
  Receive Date: 20250416
  Receipt Date: 20250416
  Transmission Date: 20250716
  Serious: Yes (Hospitalization)
  Sender: NOVARTIS
  Company Number: RU-002147023-NVSC2025RU062116

PATIENT
  Age: 75 Year
  Sex: Female

DRUGS (14)
  1. VALSARTAN [Interacting]
     Active Substance: VALSARTAN
     Indication: Hypertensive heart disease
     Dosage: 160 MG, QD
     Route: 048
     Dates: start: 2022
  2. KETOROLAC [Interacting]
     Active Substance: KETOROLAC TROMETHAMINE
     Indication: Spinal pain
     Dosage: 60 MG, QD
     Route: 030
     Dates: start: 202210
  3. ENOXAPARIN SODIUM [Interacting]
     Active Substance: ENOXAPARIN SODIUM
     Indication: Venous thrombosis
     Route: 065
     Dates: start: 2022, end: 2022
  4. TORSEMIDE [Interacting]
     Active Substance: TORSEMIDE
     Indication: Hypertensive heart disease
     Dosage: 10 MG, QD
     Route: 048
     Dates: start: 2022
  5. MOXONIDINE [Concomitant]
     Active Substance: MOXONIDINE
     Indication: Hypertensive heart disease
     Dosage: 0.4 MG, QD
     Route: 048
     Dates: start: 2022, end: 2022
  6. BISOPROLOL [Concomitant]
     Active Substance: BISOPROLOL
     Indication: Hypertensive heart disease
     Dosage: 5 MG, BID
     Route: 048
     Dates: start: 2022, end: 2022
  7. NIFEDIPINE [Concomitant]
     Active Substance: NIFEDIPINE
     Indication: Hypertensive heart disease
     Dosage: 20 MG, BID
     Route: 048
     Dates: start: 2022, end: 2022
  8. FAMOTIDINE [Concomitant]
     Active Substance: FAMOTIDINE
     Indication: Gastrointestinal disorder
     Dosage: 20 MG, QD
     Route: 048
     Dates: start: 2022
  9. POTASSIUM CHLORIDE [Concomitant]
     Active Substance: POTASSIUM CHLORIDE
     Indication: Hypokalaemia
     Route: 041
     Dates: start: 2022
  10. SODIUM CHLORIDE [Concomitant]
     Active Substance: SODIUM CHLORIDE
     Indication: Hypokalaemia
     Dosage: 400 ML, QD
     Route: 041
     Dates: start: 2022
  11. FURAZIDINE [Concomitant]
     Active Substance: FURAZIDINE
     Indication: Urinary tract infection
     Dosage: 100 MG, TID
     Route: 048
     Dates: start: 2022
  12. CEFEPIME [Concomitant]
     Active Substance: CEFEPIME HYDROCHLORIDE
     Indication: Intervertebral discitis
     Dosage: 2 G, BID
     Route: 041
     Dates: start: 2022
  13. CLINDAMYCIN [Concomitant]
     Active Substance: CLINDAMYCIN
     Indication: Intervertebral discitis
     Dosage: 600 MG, TID (THREE TIMES A DAY FOR 14 DAYS)
     Route: 041
     Dates: start: 2022
  14. PIPERACILLIN SODIUM\TAZOBACTAM SODIUM [Concomitant]
     Active Substance: PIPERACILLIN SODIUM\TAZOBACTAM SODIUM
     Indication: Intervertebral discitis
     Dosage: 4.5 G, TID (THREE TIMES A DAY FOR 11 DAYS)
     Route: 041
     Dates: start: 2022

REACTIONS (1)
  - Drug interaction [Unknown]

NARRATIVE: CASE EVENT DATE: 20220101
